FAERS Safety Report 6296251-4 (Version None)
Quarter: 2009Q3

REPORT INFORMATION
  Report Type: 
  Country: None (occurrence: None)
  Receive Date: 20090803
  Receipt Date: 20090803
  Transmission Date: 20100115
  Serious: Yes (Other)
  Sender: FDA-Public Use
  Company Number: None

PATIENT
  Age: 47 Year
  Sex: Female
  Weight: 58.9676 kg

DRUGS (1)
  1. LYRICA [Suspect]
     Indication: NEURITIS
     Dosage: 75MG BID PO
     Route: 048
     Dates: start: 20060101, end: 20060915

REACTIONS (7)
  - DEPRESSION [None]
  - DISTURBANCE IN ATTENTION [None]
  - DRUG WITHDRAWAL SYNDROME [None]
  - MIGRAINE [None]
  - SEDATION [None]
  - SUICIDAL IDEATION [None]
  - WEIGHT INCREASED [None]
